FAERS Safety Report 6535361-0 (Version None)
Quarter: 2010Q1

REPORT INFORMATION
  Report Type: 
  Country: None (occurrence: None)
  Receive Date: 20100113
  Receipt Date: 20100104
  Transmission Date: 20100710
  Serious: Yes (Hospitalization)
  Sender: FDA-Public Use
  Company Number: US-JNJFOC-20080105308

PATIENT
  Sex: Female
  Weight: 119.75 kg

DRUGS (7)
  1. ORTHO EVRA [Suspect]
     Indication: DRUG USE FOR UNKNOWN INDICATION
     Route: 062
  2. ORTHO EVRA [Suspect]
     Route: 062
  3. ORTHO CYCLEN-28 [Suspect]
     Indication: DRUG USE FOR UNKNOWN INDICATION
  4. CARDIAZEM [Concomitant]
  5. ATENOLOL [Concomitant]
  6. GLUCAPHAGE [Concomitant]
  7. SEROQUEL [Concomitant]

REACTIONS (4)
  - CONTRAINDICATION TO MEDICAL TREATMENT [None]
  - DEEP VEIN THROMBOSIS [None]
  - MENOMETRORRHAGIA [None]
  - PULMONARY EMBOLISM [None]
